FAERS Safety Report 11742300 (Version 1)
Quarter: 2015Q4

REPORT INFORMATION
  Report Type: Spontaneous
  Country: US (occurrence: None)
  Receive Date: 20151113
  Receipt Date: 20151113
  Transmission Date: 20160304
  Serious: Yes (Hospitalization)
  Sender: FDA-Public Use
  Company Number: None

PATIENT
  Age: 66 Year
  Sex: Male
  Weight: 76.66 kg

DRUGS (1)
  1. AMITRIPTYLINE 10MG [Suspect]
     Active Substance: AMITRIPTYLINE
     Indication: INSOMNIA
     Route: 048
     Dates: start: 20150417, end: 20151101

REACTIONS (3)
  - Hallucination [None]
  - Intentional self-injury [None]
  - Self injurious behaviour [None]

NARRATIVE: CASE EVENT DATE: 20151102
